FAERS Safety Report 4358217-0 (Version None)
Quarter: 2004Q2

REPORT INFORMATION
  Report Type: 
  Country: None (occurrence: None)
  Receive Date: 20040511
  Receipt Date: 20040428
  Transmission Date: 20050107
  Serious: Yes (Other)
  Sender: FDA-Public Use
  Company Number: 2002-04851

PATIENT
  Age: 48 Year
  Sex: Male
  Weight: 65.4541 kg

DRUGS (2)
  1. VIREAD [Suspect]
     Indication: HIV INFECTION
     Dosage: SEE IMAGE
     Route: 048
     Dates: start: 20021104
  2. T-20 (ENFUVIRTIDE) [Suspect]
     Indication: HIV INFECTION
     Dosage: 90 MG, 2 IN 1 D, ORAL
     Route: 048
     Dates: end: 20020718

REACTIONS (4)
  - GALLBLADDER DISORDER [None]
  - HEPATITIS ACUTE [None]
  - HEPATOMEGALY [None]
  - SPLENOMEGALY [None]
